FAERS Safety Report 6813734-6 (Version None)
Quarter: 2010Q3

REPORT INFORMATION
  Report Type: 
  Country: None (occurrence: None)
  Receive Date: 20100701
  Receipt Date: 20100629
  Transmission Date: 20110219
  Serious: Yes (Other)
  Sender: FDA-Public Use
  Company Number: ES-MERCK-1006ESP00040

PATIENT
  Age: 72 Year
  Sex: Male

DRUGS (2)
  1. FOSAMAX [Suspect]
     Indication: OSTEOPOROSIS
     Route: 048
  2. ACETAMINOPHEN [Concomitant]
     Indication: OSTEOARTHRITIS
     Route: 048

REACTIONS (2)
  - LICHEN PLANUS [None]
  - OFF LABEL USE [None]
